APPROVED DRUG PRODUCT: ATROPINE SULFATE
Active Ingredient: ATROPINE SULFATE
Strength: 1MG/10ML (0.1MG/ML)
Dosage Form/Route: SOLUTION;INTRAVENOUS
Application: N021146 | Product #003 | TE Code: AP
Applicant: HOSPIRA INC
Approved: Jul 9, 2001 | RLD: Yes | RS: Yes | Type: RX